FAERS Safety Report 6250880-2 (Version None)
Quarter: 2009Q2

REPORT INFORMATION
  Report Type: 
  Country: None (occurrence: None)
  Receive Date: 20090630
  Receipt Date: 20090415
  Transmission Date: 20091009
  Serious: No
  Sender: FDA-Public Use
  Company Number: US-BAUSCH-2009BL001714

PATIENT
  Age: 78 Year
  Sex: Male

DRUGS (6)
  1. ALAWAY [Suspect]
     Indication: EYE PRURITUS
     Route: 047
     Dates: start: 20090409, end: 20090412
  2. ADVAIR HFA [Concomitant]
     Indication: EMPHYSEMA
     Route: 049
  3. SPIRIVA [Concomitant]
     Indication: EMPHYSEMA
     Route: 049
  4. METOPROLOL SUCCINATE [Concomitant]
     Indication: HYPERTENSION
     Route: 048
  5. LISINOPRIL [Concomitant]
     Indication: HYPERTENSION
     Route: 048
  6. FLOMAX [Concomitant]
     Indication: DRUG USE FOR UNKNOWN INDICATION
     Route: 048

REACTIONS (2)
  - EYELID OEDEMA [None]
  - SWELLING FACE [None]
